FAERS Safety Report 6713947-8 (Version None)
Quarter: 2010Q2

REPORT INFORMATION
  Report Type: 
  Country: None (occurrence: None)
  Receive Date: 20100506
  Receipt Date: 20100429
  Transmission Date: 20101027
  Serious: Yes (Hospitalization)
  Sender: FDA-Public Use
  Company Number: FR-BRISTOL-MYERS SQUIBB COMPANY-15039951

PATIENT
  Age: 55 Year
  Sex: Male
  Weight: 69 kg

DRUGS (3)
  1. CETUXIMAB [Suspect]
     Indication: HEAD AND NECK CANCER
     Dosage: STRENGTH= 5MG/ML;RECENT INF-16MAR2010
     Route: 042
     Dates: start: 20100223
  2. CISPLATIN [Suspect]
     Indication: HEAD AND NECK CANCER
     Dosage: RECENT INF-16MAR2010
     Route: 042
     Dates: start: 20100223
  3. FLUOROURACIL [Suspect]
     Indication: HEAD AND NECK CANCER
     Dosage: CONTINUOUS INFUSION DAY 1 TO DAY 4 OF THE CYCLE;RECENT INF-19MAR2010
     Route: 042
     Dates: start: 20100223

REACTIONS (5)
  - FATIGUE [None]
  - MUCOSAL INFLAMMATION [None]
  - NAUSEA [None]
  - VERTIGO [None]
  - VOMITING [None]
